FAERS Safety Report 5363989-2 (Version None)
Quarter: 2007Q2

REPORT INFORMATION
  Report Type: 
  Country: None (occurrence: None)
  Receive Date: 20070620
  Receipt Date: 20070608
  Transmission Date: 20071010
  Serious: Yes (Death, Other)
  Sender: FDA-Public Use
  Company Number: PL-PFIZER INC-2006075044

PATIENT
  Sex: Male
  Weight: 92 kg

DRUGS (1)
  1. SU-011,248 [Suspect]
     Indication: METASTATIC RENAL CELL CARCINOMA
     Route: 048
     Dates: start: 20060505, end: 20060601

REACTIONS (7)
  - ASCITES [None]
  - DISEASE PROGRESSION [None]
  - DRUG TOXICITY [None]
  - FAECAL INCONTINENCE [None]
  - METASTATIC RENAL CELL CARCINOMA [None]
  - RENAL FAILURE [None]
  - URINARY INCONTINENCE [None]
